FAERS Safety Report 6264246-2 (Version None)
Quarter: 2009Q3

REPORT INFORMATION
  Report Type: 
  Country: None (occurrence: None)
  Receive Date: 20090706
  Receipt Date: 20081007
  Transmission Date: 20100115
  Serious: Yes (Hospitalization)
  Sender: FDA-Public Use
  Company Number: 590329

PATIENT
  Age: 76 Year
  Sex: Female

DRUGS (10)
  1. CELLCEPT [Suspect]
     Indication: PROPHYLAXIS AGAINST TRANSPLANT REJECTION
     Dosage: 1000 MG
     Dates: start: 19970101
  2. PREDNISONE TAB [Concomitant]
  3. PROGRAF [Concomitant]
  4. ATENOLOL [Concomitant]
  5. FOLIC ACID [Concomitant]
  6. PRILOSEC [Concomitant]
  7. BACTRIM [Concomitant]
  8. LASIX [Concomitant]
  9. ASPIRIN [Concomitant]
  10. IRON (IRON NOS) [Concomitant]

REACTIONS (2)
  - DYSPNOEA [None]
  - RENAL FAILURE [None]
